FAERS Safety Report 6074812-5 (Version None)
Quarter: 2009Q1

REPORT INFORMATION
  Report Type: 
  Country: None (occurrence: None)
  Receive Date: 20090209
  Receipt Date: 20090202
  Transmission Date: 20090719
  Serious: No
  Sender: FDA-Public Use
  Company Number: 163077

PATIENT
  Age: 66 Year
  Sex: Female
  Weight: 45.3597 kg

DRUGS (1)
  1. PROPOFOL [Suspect]
     Dosage: INTRAVENOUS
     Route: 042
     Dates: start: 20081031, end: 20081031

REACTIONS (3)
  - EYE PAIN [None]
  - LACRIMATION INCREASED [None]
  - OCULAR HYPERAEMIA [None]
